FAERS Safety Report 4467845-3 (Version None)
Quarter: 2004Q4

REPORT INFORMATION
  Report Type: 
  Country: None (occurrence: None)
  Receive Date: 20041004
  Receipt Date: 20041004
  Transmission Date: 20050328
  Serious: No
  Sender: FDA-Public Use
  Company Number: None

PATIENT
  Age: 36 Year
  Sex: Female
  Weight: 63.5036 kg

DRUGS (6)
  1. TRAZODONE HCL [Suspect]
     Indication: ANXIETY DISORDER
     Dosage: 50MG  HS  ORAL
     Route: 048
     Dates: start: 20040809, end: 20040929
  2. TRAZODONE HCL [Suspect]
     Indication: DEPRESSION
     Dosage: 50MG  HS  ORAL
     Route: 048
     Dates: start: 20040809, end: 20040929
  3. KALETRA [Concomitant]
  4. VIREAD [Concomitant]
  5. VIDEX EC [Concomitant]
  6. ZOLOFT [Concomitant]

REACTIONS (1)
  - TACHYCARDIA [None]
